FAERS Safety Report 4977492-2 (Version None)
Quarter: 2006Q2

REPORT INFORMATION
  Report Type: 
  Country: None (occurrence: None)
  Receive Date: 20060420
  Receipt Date: 20060418
  Transmission Date: 20061013
  Serious: Yes (Other)
  Sender: FDA-Public Use
  Company Number: DE-RB-3129-2006

PATIENT
  Age: 26 Year
  Sex: Male
  Weight: 64 kg

DRUGS (2)
  1. BUPRENORPHINE HCL [Suspect]
     Dosage: 6 -10 MG QD
     Route: 060
     Dates: start: 20040315
  2. BUPRENORPHINE HCL [Suspect]
     Route: 060

REACTIONS (1)
  - LIBIDO DECREASED [None]
